FAERS Safety Report 9405581 (Version 1)
Quarter: 2013Q3

REPORT INFORMATION
  Report Type: Report from Study
  Country: HU (occurrence: HU)
  Receive Date: 20130717
  Receipt Date: 20130717
  Transmission Date: 20140515
  Serious: Yes (Other)
  Sender: FDA-Public Use
  Company Number: HU-ABBOTT-13P-076-1120592-00

PATIENT
  Age: 32 Year
  Sex: Female
  Weight: 108 kg

DRUGS (3)
  1. HUMIRA [Suspect]
     Indication: RHEUMATOID ARTHRITIS
     Route: 058
     Dates: start: 20130424, end: 20130610
  2. TREXAN [Concomitant]
     Indication: RHEUMATOID ARTHRITIS
     Dosage: WEEKLY
     Route: 048
  3. SALAZOPYRIN [Concomitant]
     Indication: RHEUMATOID ARTHRITIS
     Dosage: 4X500MG
     Route: 048

REACTIONS (3)
  - Abortion induced [Unknown]
  - Eczema [Not Recovered/Not Resolved]
  - Tooth disorder [Unknown]
